FAERS Safety Report 23702189 (Version 1)
Quarter: 2024Q2

REPORT INFORMATION
  Report Type: Spontaneous
  Country: US (occurrence: None)
  Receive Date: 20240403
  Receipt Date: 20240403
  Transmission Date: 20240716
  Serious: Yes (Disabling)
  Sender: FDA-Public Use
  Company Number: None

PATIENT
  Age: 53 Year
  Sex: Female
  Weight: 81 kg

DRUGS (1)
  1. LITHIUM [Suspect]
     Active Substance: LITHIUM
     Indication: Bipolar disorder
     Dosage: OTHER QUANTITY : 2 CAPSULE(S);?FREQUENCY : TWICE A DAY;?
     Route: 048
     Dates: start: 20100501

REACTIONS (13)
  - Joint swelling [None]
  - Joint swelling [None]
  - Blister [None]
  - Swelling face [None]
  - Hyperhidrosis [None]
  - Dyspnoea [None]
  - Alopecia [None]
  - Weight increased [None]
  - Micturition urgency [None]
  - Fatigue [None]
  - Insomnia [None]
  - Asthenia [None]
  - Quality of life decreased [None]

NARRATIVE: CASE EVENT DATE: 20210107
